FAERS Safety Report 17809758 (Version 1)
Quarter: 2020Q2

REPORT INFORMATION
  Report Type: Spontaneous
  Country: DE (occurrence: DE)
  Receive Date: 20200520
  Receipt Date: 20200520
  Transmission Date: 20200714
  Serious: Yes (Other)
  Sender: FDA-Public Use
  Company Number: DE-009507513-2005DEU004380

PATIENT
  Sex: Male
  Weight: 105 kg

DRUGS (10)
  1. ALLOPURINOL. [Concomitant]
     Active Substance: ALLOPURINOL
     Dosage: 0-0-1
  2. RAMIPRIL RATIOPHARM [Concomitant]
     Active Substance: RAMIPRIL
     Dosage: 1-0-0
  3. ISENTRESS [Suspect]
     Active Substance: RALTEGRAVIR POTASSIUM
     Dosage: 1X400 MG-0-0
     Route: 048
     Dates: start: 2015
  4. DESCOVY [Concomitant]
     Active Substance: EMTRICITABINE\TENOFOVIR ALAFENAMIDE FUMARATE
     Dosage: 1-0-0
  5. ISENTRESS [Suspect]
     Active Substance: RALTEGRAVIR POTASSIUM
     Dosage: 2X600 MG-0-0
     Route: 048
  6. AMLODIPINE BESYLATE. [Concomitant]
     Active Substance: AMLODIPINE BESYLATE
     Dosage: 1-0-1
  7. JANUMET [Concomitant]
     Active Substance: METFORMIN HYDROCHLORIDE\SITAGLIPTIN PHOSPHATE
     Dosage: 1-0-0
  8. LEVEMIR [Concomitant]
     Active Substance: INSULIN DETEMIR
     Dosage: 0-0-0-20 IE ONLY BEFORE GOING TO BED
  9. SYMBICORT [Concomitant]
     Active Substance: BUDESONIDE\FORMOTEROL FUMARATE DIHYDRATE
     Dosage: 2-1-0
  10. ISENTRESS [Suspect]
     Active Substance: RALTEGRAVIR POTASSIUM
     Dosage: 1X600 MG-0-0
     Route: 048

REACTIONS (25)
  - Osteochondrosis [Unknown]
  - Hypertension [Unknown]
  - Seasonal allergy [Unknown]
  - Ventricular hypertrophy [Unknown]
  - Gastrointestinal disorder [Unknown]
  - Anal fissure [Unknown]
  - Spinal osteoarthritis [Unknown]
  - Hepatic steatosis [Unknown]
  - Asthma [Unknown]
  - Diverticulum [Unknown]
  - Intervertebral disc protrusion [Unknown]
  - Incorrect dose administered [Unknown]
  - Foramen magnum stenosis [Unknown]
  - Hyperuricaemia [Unknown]
  - Pain [Unknown]
  - Hyperlipidaemia [Unknown]
  - Limb asymmetry [Unknown]
  - Sleep apnoea syndrome [Unknown]
  - Benign prostatic hyperplasia [Unknown]
  - Monoparesis [Unknown]
  - Cataract [Unknown]
  - Hepatic steatosis [Unknown]
  - Umbilical hernia [Unknown]
  - Migraine [Unknown]
  - Pancreatic steatosis [Unknown]

NARRATIVE: CASE EVENT DATE: 2015
